FAERS Safety Report 5535998-1 (Version None)
Quarter: 2007Q4

REPORT INFORMATION
  Report Type: 
  Country: None (occurrence: None)
  Receive Date: 20071120
  Receipt Date: 20070809
  Transmission Date: 20080405
  Serious: No
  Sender: FDA-Public Use
  Company Number: WAES 0708USA01857

PATIENT
  Age: 65 Year
  Sex: Female
  Weight: 92.5338 kg

DRUGS (15)
  1. JANUVIA [Suspect]
     Indication: DIABETES MELLITUS
     Dosage: 100 MG/DAILY/PO
     Route: 048
     Dates: start: 20070719, end: 20070801
  2. ATIVAN [Concomitant]
  3. AVANDIA [Concomitant]
  4. CARAFATE [Concomitant]
  5. DESYREL [Concomitant]
  6. DOLOBID [Concomitant]
  7. GLUCOPHAGE XR [Concomitant]
  8. MACRODANTIN [Concomitant]
  9. MAXALT [Concomitant]
  10. PERCOCET [Concomitant]
  11. PREMARIN [Concomitant]
  12. CALCIUM (UNSPECIFIED) (+) VITAMI [Concomitant]
  13. LISINOPRIL [Concomitant]
  14. QUININE SULFATE [Concomitant]
  15. VITAMINS (UNSPECIFIED) [Concomitant]

REACTIONS (2)
  - CHILLS [None]
  - URINARY TRACT INFECTION [None]
